FAERS Safety Report 5195174-1 (Version None)
Quarter: 2006Q4

REPORT INFORMATION
  Report Type: 
  Country: None (occurrence: None)
  Receive Date: 20061229
  Receipt Date: 20060414
  Transmission Date: 20070319
  Serious: Yes (Hospitalization)
  Sender: FDA-Public Use
  Company Number: US-PFIZER INC-2006051036

PATIENT
  Sex: Male
  Weight: 106.1 kg

DRUGS (19)
  1. ATORVASTATIN CALCIUM [Suspect]
     Indication: CORONARY ARTERY DISEASE
     Route: 048
     Dates: start: 20040320, end: 20040427
  2. ATORVASTATIN CALCIUM [Suspect]
     Route: 048
     Dates: start: 20040428, end: 20060413
  3. ATENOLOL [Concomitant]
     Route: 048
     Dates: start: 20030902, end: 20060410
  4. LISINOPRIL [Concomitant]
     Route: 048
  5. RANITIDINE [Concomitant]
     Route: 048
  6. INSULIN [Concomitant]
     Route: 058
  7. INSULIN ASPART [Concomitant]
     Route: 058
  8. ROSIGLITAZONE [Concomitant]
     Route: 048
  9. CALCIUM WITH VITAMIN D [Concomitant]
     Route: 048
  10. IRBESARTAN [Concomitant]
     Route: 048
  11. FUROSEMIDE [Concomitant]
     Route: 048
  12. GLYCERYL TRINITRATE [Concomitant]
     Route: 048
  13. ISOSORBIDE [Concomitant]
     Route: 048
  14. BENAZEPRIL HYDROCHLORIDE [Concomitant]
     Route: 048
  15. PRIMIDONE [Concomitant]
     Route: 048
  16. AMITRIPTYLINE HCL [Concomitant]
     Route: 048
  17. FELODIPINE [Concomitant]
     Route: 048
  18. ALBUTEROL [Concomitant]
     Route: 055
  19. ASPIRIN [Concomitant]
     Route: 048

REACTIONS (5)
  - CARDIAC FAILURE CONGESTIVE [None]
  - CARDIOMEGALY [None]
  - HYPERTENSION [None]
  - RENAL FAILURE CHRONIC [None]
  - VENTRICULAR DYSFUNCTION [None]
